FAERS Safety Report 14511626 (Version 3)
Quarter: 2018Q2

REPORT INFORMATION
  Report Type: Spontaneous
  Country: US (occurrence: US)
  Receive Date: 20180209
  Receipt Date: 20180430
  Transmission Date: 20180711
  Serious: Yes (Other)
  Sender: FDA-Public Use
  Company Number: US-BAYER-2018-026646

PATIENT
  Age: 36 Year
  Sex: Female

DRUGS (2)
  1. MIRENA [Suspect]
     Active Substance: LEVONORGESTREL
     Indication: CONTRACEPTION
     Dosage: 20 MCG/24HR, CONT
     Route: 015
     Dates: start: 20170419, end: 20180208
  2. MIRENA [Suspect]
     Active Substance: LEVONORGESTREL
     Indication: CONTRACEPTION

REACTIONS (6)
  - Haemorrhage in pregnancy [Recovered/Resolved]
  - Syncope [None]
  - Ruptured ectopic pregnancy [None]
  - Drug ineffective [None]
  - Ectopic pregnancy with contraceptive device [None]
  - Abdominal pain lower [None]

NARRATIVE: CASE EVENT DATE: 20180208
